FAERS Safety Report 22189264 (Version 1)
Quarter: 2023Q2

REPORT INFORMATION
  Report Type: Report from Study
  Country: CN (occurrence: CN)
  Receive Date: 20230410
  Receipt Date: 20230410
  Transmission Date: 20230722
  Serious: Yes (Death, Life-Threatening, Hospitalization)
  Sender: FDA-Public Use
  Company Number: CN-BEIGENE-BGN-2022-000778

PATIENT
  Age: 46 Year
  Sex: Male
  Weight: 74 kg

DRUGS (3)
  1. TISLELIZUMAB [Suspect]
     Active Substance: TISLELIZUMAB
     Indication: Transitional cell carcinoma
     Dosage: 200 MG
     Route: 042
     Dates: start: 20201224
  2. CISPLATIN [Suspect]
     Active Substance: CISPLATIN
     Indication: Transitional cell carcinoma
     Dosage: 118 MG
     Route: 042
     Dates: start: 20201225
  3. GEMCITABINE [Suspect]
     Active Substance: GEMCITABINE
     Indication: Transitional cell carcinoma
     Dosage: 1960 MG
     Route: 042
     Dates: start: 20201224

REACTIONS (2)
  - Acute myeloid leukaemia [Not Recovered/Not Resolved]
  - Respiratory failure [Fatal]

NARRATIVE: CASE EVENT DATE: 20220124
